FAERS Safety Report 21078374 (Version 1)
Quarter: 2022Q3

REPORT INFORMATION
  Report Type: Report from Study
  Country: US (occurrence: US)
  Receive Date: 20220713
  Receipt Date: 20220713
  Transmission Date: 20221027
  Serious: No
  Sender: FDA-Public Use
  Company Number: US-VANDA PHARMACEUTICALS, INC-2022TASUS005806

PATIENT
  Sex: Female

DRUGS (1)
  1. HETLIOZ [Suspect]
     Active Substance: TASIMELTEON
     Indication: Bipolar disorder
     Dosage: 20 MILLIGRAM, QHS
     Route: 048
     Dates: start: 2022

REACTIONS (2)
  - Bipolar disorder [Unknown]
  - Off label use [Unknown]
